FAERS Safety Report 11279779 (Version 1)
Quarter: 2015Q3

REPORT INFORMATION
  Report Type: Spontaneous
  Country: US (occurrence: None)
  Receive Date: 20150716
  Receipt Date: 20150716
  Transmission Date: 20151125
  Serious: Yes (Life-Threatening, Disabling, Other)
  Sender: FDA-Public Use
  Company Number: None

PATIENT
  Age: 58 Year
  Sex: Female
  Weight: 67.13 kg

DRUGS (5)
  1. CLONAZEPAM. [Suspect]
     Active Substance: CLONAZEPAM
     Indication: ANXIETY
     Route: 048
     Dates: start: 20150713, end: 20150713
  2. LEXAPRO [Concomitant]
     Active Substance: ESCITALOPRAM OXALATE
  3. LOTREL CLONAZEPAM NEXIUM [Concomitant]
  4. TRIPLE MAGNESIUM [Concomitant]
  5. PROLIA INFUSION VITAMIN D [Concomitant]

REACTIONS (2)
  - Intercepted drug administration error [None]
  - Drug dispensing error [None]

NARRATIVE: CASE EVENT DATE: 20150713
